FAERS Safety Report 8987032 (Version 1)
Quarter: 2012Q4

REPORT INFORMATION
  Report Type: 
  Country: ES (occurrence: ES)
  Receive Date: 20121227
  Receipt Date: 20121227
  Transmission Date: 20130627
  Serious: Yes (Other)
  Sender: FDA-Public Use
  Company Number: ES-JNJFOC-20121211186

PATIENT
  Age: 48 Year
  Sex: Male

DRUGS (5)
  1. ZALDIAR [Suspect]
     Indication: POST LAMINECTOMY SYNDROME
     Route: 048
     Dates: start: 201005
  2. DULOXETINE HYDROCHLORIDE [Suspect]
     Indication: POST LAMINECTOMY SYNDROME
     Route: 048
     Dates: start: 200911
  3. BACLOFEN [Suspect]
     Indication: POST LAMINECTOMY SYNDROME
     Route: 048
     Dates: start: 200812
  4. PREGABALIN [Suspect]
     Indication: POST LAMINECTOMY SYNDROME
     Route: 065
     Dates: start: 200912
  5. CLONAZEPAM [Suspect]
     Indication: POST LAMINECTOMY SYNDROME
     Route: 048
     Dates: start: 200912

REACTIONS (1)
  - Erectile dysfunction [Not Recovered/Not Resolved]
